FAERS Safety Report 9177045 (Version 2)
Quarter: 2013Q1

REPORT INFORMATION
  Report Type: Spontaneous
  Country: GB (occurrence: None)
  Receive Date: 20130325
  Receipt Date: 20130325
  Transmission Date: 20140127
  Serious: Yes (Other)
  Sender: FDA-Public Use
  Company Number: GER/UKI/13/0028560

PATIENT
  Age: 68 Year
  Sex: Female
  Weight: 53 kg

DRUGS (3)
  1. ANASTROZOLE [Suspect]
     Indication: BREAST CANCER FEMALE
     Route: 048
     Dates: start: 201106
  2. FLECAINIDE [Concomitant]
  3. SIMVASTATIN [Concomitant]

REACTIONS (4)
  - Dementia Alzheimer^s type [None]
  - Liver function test abnormal [None]
  - Amnesia [None]
  - Memory impairment [None]
